FAERS Safety Report 5718712-6 (Version None)
Quarter: 2008Q2

REPORT INFORMATION
  Report Type: 
  Country: None (occurrence: None)
  Receive Date: 20080425
  Receipt Date: 20080414
  Transmission Date: 20081010
  Serious: Yes (Other)
  Sender: FDA-Public Use
  Company Number: US-PFIZER INC-2008033654

PATIENT
  Sex: Male
  Weight: 81.6 kg

DRUGS (4)
  1. LYRICA [Suspect]
     Indication: NEUROPATHY PERIPHERAL
  2. LISINOPRIL [Concomitant]
  3. SIMVASTATIN [Concomitant]
  4. ACETYLSALICYLIC ACID SRT [Concomitant]

REACTIONS (4)
  - CONSTIPATION [None]
  - CONTUSION [None]
  - DIZZINESS [None]
  - HAEMORRHAGE [None]
